FAERS Safety Report 5780327-1 (Version None)
Quarter: 2008Q2

REPORT INFORMATION
  Report Type: 
  Country: None (occurrence: None)
  Receive Date: 20080620
  Receipt Date: 20080613
  Transmission Date: 20081010
  Serious: Yes (Other)
  Sender: FDA-Public Use
  Company Number: A0732068A

PATIENT
  Age: 35 Year
  Sex: Female

DRUGS (2)
  1. COMBIVIR [Suspect]
     Indication: HIV INFECTION
     Dosage: 900MG PER DAY
     Route: 048
     Dates: start: 20080208
  2. KALETRA [Concomitant]
     Indication: HIV INFECTION
     Dosage: 1000MG PER DAY
     Route: 048
     Dates: start: 20080208

REACTIONS (4)
  - CHORIOAMNIONITIS [None]
  - DRUG EXPOSURE DURING PREGNANCY [None]
  - INFECTION [None]
  - STILLBIRTH [None]
